FAERS Safety Report 5974314-8 (Version None)
Quarter: 2008Q4

REPORT INFORMATION
  Report Type: 
  Country: None (occurrence: None)
  Receive Date: 20081201
  Receipt Date: 20081126
  Transmission Date: 20090506
  Serious: Yes (Other)
  Sender: FDA-Public Use
  Company Number: US-PFIZER INC-2008089846

PATIENT
  Sex: Female

DRUGS (5)
  1. LIPITOR [Interacting]
     Dates: start: 20010101, end: 20081023
  2. NORVASC [Interacting]
  3. SPIRIVA [Interacting]
     Dates: start: 20080801
  4. PREDNISONE TAB [Suspect]
     Indication: RESPIRATORY TRACT INFECTION
     Dates: start: 20081027
  5. SEREVENT [Suspect]
     Dates: start: 20080801

REACTIONS (7)
  - ARTHRALGIA [None]
  - BONE PAIN [None]
  - DRUG INTERACTION [None]
  - MUSCULOSKELETAL PAIN [None]
  - NECK PAIN [None]
  - PAIN IN EXTREMITY [None]
  - RESPIRATORY TRACT INFECTION [None]
